FAERS Safety Report 8488139-5 (Version None)
Quarter: 2012Q3

REPORT INFORMATION
  Report Type: 
  Country: None (occurrence: None)
  Receive Date: 20120705
  Receipt Date: 20120702
  Transmission Date: 20120928
  Serious: Yes (Hospitalization)
  Sender: FDA-Public Use
  Company Number: PHHO2011CA05711

PATIENT
  Sex: Male
  Weight: 68.2 kg

DRUGS (2)
  1. RAD001C [Suspect]
     Indication: PANCREATIC NEUROENDOCRINE TUMOUR
     Dosage: 10 MG, UNK
     Dates: start: 20090422
  2. PLACEBO [Suspect]
     Indication: PANCREATIC NEUROENDOCRINE TUMOUR
     Dosage: 10 MG, UNK
     Dates: start: 20081031, end: 20090414

REACTIONS (1)
  - ABDOMINAL PAIN [None]
